FAERS Safety Report 11881864 (Version 1)
Quarter: 2015Q4

REPORT INFORMATION
  Report Type: Spontaneous
  Country: US (occurrence: None)
  Receive Date: 20151230
  Receipt Date: 20151230
  Transmission Date: 20160305
  Serious: Yes (Disabling)
  Sender: FDA-Public Use
  Company Number: None

PATIENT
  Age: 73 Year
  Sex: Female
  Weight: 63.5 kg

DRUGS (10)
  1. MULTI VITAMIN - MINERAL [Concomitant]
  2. VITAMIN E [Concomitant]
     Active Substance: .ALPHA.-TOCOPHEROL
  3. VITAMIN C [Concomitant]
     Active Substance: ASCORBIC ACID
  4. VITAMIN D3 [Concomitant]
     Active Substance: CHOLECALCIFEROL
  5. GLUCOSAMINE - CHONDROITIN [Concomitant]
  6. COENZYME Q10 [Concomitant]
     Active Substance: UBIDECARENONE
  7. ATORVASTATIN 10MG [Suspect]
     Active Substance: ATORVASTATIN
     Indication: BLOOD CHOLESTEROL INCREASED
     Route: 048
     Dates: start: 20151011, end: 20151017
  8. WARFARIN SODIUM. [Concomitant]
     Active Substance: WARFARIN SODIUM
  9. LEVOTHYROXINE SODIUM. [Concomitant]
     Active Substance: LEVOTHYROXINE SODIUM
  10. FISH OIL [Concomitant]
     Active Substance: FISH OIL

REACTIONS (17)
  - Faeces soft [None]
  - Defaecation urgency [None]
  - Abdominal discomfort [None]
  - Frequent bowel movements [None]
  - Confusional state [None]
  - Asthenia [None]
  - Arthralgia [None]
  - Throat irritation [None]
  - Nasal discomfort [None]
  - Musculoskeletal stiffness [None]
  - Eructation [None]
  - Flatulence [None]
  - Fatigue [None]
  - Bronchitis [None]
  - Joint stiffness [None]
  - Initial insomnia [None]
  - Middle insomnia [None]

NARRATIVE: CASE EVENT DATE: 20151012
